FAERS Safety Report 17657846 (Version 1)
Quarter: 2020Q2

REPORT INFORMATION
  Report Type: Spontaneous
  Country: US (occurrence: US)
  Receive Date: 20200411
  Receipt Date: 20200411
  Transmission Date: 20200713
  Serious: No
  Sender: FDA-Public Use
  Company Number: NVSC2020US097417

PATIENT
  Sex: Female

DRUGS (1)
  1. XIIDRA [Suspect]
     Active Substance: LIFITEGRAST
     Indication: PRODUCT USED FOR UNKNOWN INDICATION
     Route: 065

REACTIONS (8)
  - Back injury [Unknown]
  - Vision blurred [Unknown]
  - Product use issue [Unknown]
  - Dry eye [Unknown]
  - Fall [Unknown]
  - Visual acuity reduced [Unknown]
  - Diplopia [Unknown]
  - Balance disorder [Unknown]
